FAERS Safety Report 6160800-7 (Version None)
Quarter: 2009Q2

REPORT INFORMATION
  Report Type: 
  Country: None (occurrence: None)
  Receive Date: 20090420
  Receipt Date: 20090415
  Transmission Date: 20091009
  Serious: Yes (Other)
  Sender: FDA-Public Use
  Company Number: PHEH2009US03740

PATIENT
  Age: 55 Year
  Sex: Male

DRUGS (3)
  1. TEKTURNA HCT [Suspect]
     Dosage: 300/12.5
  2. TEKTURNA [Suspect]
     Dosage: 300 UNK, QD
     Route: 048
  3. AMLODIPINE [Concomitant]

REACTIONS (1)
  - BLOOD SODIUM DECREASED [None]
